FAERS Safety Report 10504520 (Version 1)
Quarter: 2014Q4

REPORT INFORMATION
  Report Type: Spontaneous
  Country: US (occurrence: None)
  Receive Date: 20141007
  Receipt Date: 20141007
  Transmission Date: 20150528
  Serious: Yes (Hospitalization)
  Sender: FDA-Public Use
  Company Number: None

PATIENT
  Age: 63 Year
  Sex: Male
  Weight: 78.93 kg

DRUGS (6)
  1. METRONIDAZOLE. [Suspect]
     Active Substance: METRONIDAZOLE
  2. BISMUTH [Suspect]
     Active Substance: BISMUTH
  3. PYLERA [Suspect]
     Active Substance: BISMUTH SUBCITRATE POTASSIUM\METRONIDAZOLE\TETRACYCLINE HYDROCHLORIDE
     Indication: PAIN IN EXTREMITY
     Dosage: 3 PILLS X4 A DAY  4 A DAY BY MOUTH?
     Route: 048
     Dates: start: 20140912, end: 20140914
  4. TETRACYCLINE [Suspect]
     Active Substance: TETRACYCLINE
  5. PYLERA [Suspect]
     Active Substance: BISMUTH SUBCITRATE POTASSIUM\METRONIDAZOLE\TETRACYCLINE HYDROCHLORIDE
     Indication: HELICOBACTER INFECTION
     Dosage: 3 PILLS X4 A DAY  4 A DAY BY MOUTH?
     Route: 048
     Dates: start: 20140912, end: 20140914
  6. OMEPRAZOLE. [Suspect]
     Active Substance: OMEPRAZOLE

REACTIONS (2)
  - Abasia [None]
  - Pain in extremity [None]

NARRATIVE: CASE EVENT DATE: 20140912
